FAERS Safety Report 19528033 (Version 4)
Quarter: 2021Q3

REPORT INFORMATION
  Report Type: Spontaneous
  Country: US (occurrence: US)
  Receive Date: 20210713
  Receipt Date: 20210827
  Transmission Date: 20211014
  Serious: Yes (Other)
  Sender: FDA-Public Use
  Company Number: US-MYLANLABS-2021M1041792

PATIENT
  Age: 80 Year
  Sex: Male

DRUGS (1)
  1. EPIPEN [Suspect]
     Active Substance: EPINEPHRINE
     Indication: PRODUCT USED FOR UNKNOWN INDICATION
     Dosage: UNK
     Route: 058
     Dates: start: 20210708, end: 20210708

REACTIONS (4)
  - Product colour issue [Unknown]
  - Accidental exposure to product [Unknown]
  - Injection site hypoaesthesia [Recovered/Resolved]
  - Injection site movement impairment [Recovered/Resolved]

NARRATIVE: CASE EVENT DATE: 20210708
